FAERS Safety Report 12317197 (Version 1)
Quarter: 2016Q2

REPORT INFORMATION
  Report Type: Spontaneous
  Country: CN (occurrence: CN)
  Receive Date: 20160429
  Receipt Date: 20160429
  Transmission Date: 20160815
  Serious: Yes (Other)
  Sender: FDA-Public Use
  Company Number: CN-BAYER-2016-076655

PATIENT
  Age: 90 Year
  Sex: Female
  Weight: 45 kg

DRUGS (2)
  1. AVELOX [Suspect]
     Active Substance: MOXIFLOXACIN HYDROCHLORIDE
     Indication: ANTIBIOTIC THERAPY
     Dosage: 0.4 G, QD
     Route: 048
     Dates: start: 20150318, end: 20150318
  2. AVELOX [Suspect]
     Active Substance: MOXIFLOXACIN HYDROCHLORIDE
     Indication: LUNG INFECTION

REACTIONS (2)
  - Dyspnoea [Recovering/Resolving]
  - Foaming at mouth [Recovering/Resolving]

NARRATIVE: CASE EVENT DATE: 20150318
